FAERS Safety Report 16754732 (Version 5)
Quarter: 2019Q4

REPORT INFORMATION
  Report Type: Spontaneous
  Country: US (occurrence: US)
  Receive Date: 20190829
  Receipt Date: 20191010
  Transmission Date: 20200122
  Serious: Yes (Other)
  Sender: FDA-Public Use
  Company Number: US-PFIZER INC-2019370288

PATIENT
  Age: 60 Year

DRUGS (1)
  1. VIAGRA [Suspect]
     Active Substance: SILDENAFIL CITRATE
     Dosage: 50 MG, UNK

REACTIONS (9)
  - Amnesia [Unknown]
  - Hearing aid user [Unknown]
  - Hypoacusis [Unknown]
  - Neoplasm malignant [Unknown]
  - Head injury [Unknown]
  - Incontinence [Unknown]
  - Mental disorder [Unknown]
  - Loss of personal independence in daily activities [Unknown]
  - Insomnia [Unknown]
